FAERS Safety Report 7753459-6 (Version None)
Quarter: 2011Q3

REPORT INFORMATION
  Report Type: 
  Country: None (occurrence: None)
  Receive Date: 20110915
  Receipt Date: 20110902
  Transmission Date: 20111222
  Serious: Yes (Hospitalization, Other)
  Sender: FDA-Public Use
  Company Number: US-ELI_LILLY_AND_COMPANY-US201101001860

PATIENT
  Sex: Female

DRUGS (26)
  1. PERCOCET [Concomitant]
  2. FORTEO [Suspect]
     Indication: OSTEOPOROSIS
     Dosage: 20 UG, QD
     Route: 058
     Dates: start: 20101028
  3. CALCIUM CARBONATE [Concomitant]
  4. MIRALAX [Concomitant]
  5. PRILOSEC [Concomitant]
  6. PREDNISONE [Concomitant]
  7. NOVOLOG [Concomitant]
  8. TENORMIN [Concomitant]
  9. LANTUS [Concomitant]
  10. COLACE [Concomitant]
  11. PRAVACHOL [Concomitant]
  12. REQUIP [Concomitant]
  13. LEXAPRO [Concomitant]
  14. AMBIEN [Concomitant]
  15. FORTEO [Suspect]
     Dosage: 20 UG, QD
     Route: 058
     Dates: end: 20110808
  16. LEVOTHROID [Concomitant]
  17. EXELON [Concomitant]
  18. ZYLOPRIM [Concomitant]
  19. MS CONTIN [Concomitant]
  20. STARLIX [Concomitant]
  21. FORTEO [Suspect]
     Dosage: 20 UG, QD
     Route: 058
  22. MAG-OX [Concomitant]
  23. ANTISEPTICS [Concomitant]
  24. KLOR-CON [Concomitant]
  25. ROBAXIN [Concomitant]
  26. COUMADIN [Concomitant]

REACTIONS (7)
  - APHONIA [None]
  - BALANCE DISORDER [None]
  - FALL [None]
  - CONTUSION [None]
  - ASTHENIA [None]
  - LOWER LIMB FRACTURE [None]
  - INFLUENZA [None]
